FAERS Safety Report 25482227 (Version 1)
Quarter: 2025Q2

REPORT INFORMATION
  Report Type: Spontaneous
  Country: US (occurrence: US)
  Receive Date: 20250626
  Receipt Date: 20250626
  Transmission Date: 20250717
  Serious: No
  Sender: GLAXOSMITHKLINE
  Company Number: US-GSK-US2025075812

PATIENT
  Age: 65 Year
  Sex: Female

DRUGS (2)
  1. BENLYSTA [Suspect]
     Active Substance: BELIMUMAB
     Indication: Systemic lupus erythematosus
     Dosage: 200 MG, WE
  2. COUMADIN [Concomitant]
     Active Substance: WARFARIN SODIUM
     Indication: Antiphospholipid syndrome
     Dosage: 5 MG, QD

REACTIONS (4)
  - Injection site bruising [Unknown]
  - Injection site pustule [Unknown]
  - Injection site induration [Unknown]
  - Injection site erythema [Unknown]

NARRATIVE: CASE EVENT DATE: 20250616
